FAERS Safety Report 7803524-X (Version None)
Quarter: 2011Q4

REPORT INFORMATION
  Report Type: 
  Country: None (occurrence: None)
  Receive Date: 20111008
  Receipt Date: 20110928
  Transmission Date: 20120403
  Serious: Yes (Other)
  Sender: FDA-Public Use
  Company Number: NO-ASTRAZENECA-2011SE58323

PATIENT
  Age: 25 Year
  Sex: Male

DRUGS (1)
  1. SEROQUEL [Suspect]
     Indication: ACUTE PSYCHOSIS
     Route: 048
     Dates: start: 20090101, end: 20110906

REACTIONS (1)
  - PERICARDITIS [None]
